FAERS Safety Report 16482264 (Version 1)
Quarter: 2019Q2

REPORT INFORMATION
  Report Type: Spontaneous
  Country: FR (occurrence: FR)
  Receive Date: 20190627
  Receipt Date: 20190627
  Transmission Date: 20190711
  Serious: Yes (Other)
  Sender: FDA-Public Use
  Company Number: FR-SUN PHARMACEUTICAL INDUSTRIES LTD-2019R1-211924

PATIENT
  Age: 21 Month
  Sex: Male

DRUGS (1)
  1. CLONIDINE. [Suspect]
     Active Substance: CLONIDINE
     Indication: BLOOD GROWTH HORMONE
     Dosage: UNK (0.15 MG)
     Route: 042

REACTIONS (7)
  - Somnolence [Recovered/Resolved]
  - Incorrect route of product administration [Unknown]
  - Hypotension [Recovered/Resolved]
  - Dyspnoea [Recovered/Resolved]
  - Wrong technique in product usage process [Unknown]
  - Miosis [Recovered/Resolved]
  - Hypertension [Recovered/Resolved]
